FAERS Safety Report 10108883 (Version 1)
Quarter: 2014Q2

REPORT INFORMATION
  Report Type: Spontaneous
  Country: US (occurrence: US)
  Receive Date: 20140425
  Receipt Date: 20140425
  Transmission Date: 20141212
  Serious: No
  Sender: FDA-Public Use
  Company Number: US-009507513-1404USA013026

PATIENT
  Age: 57 Year
  Sex: Female

DRUGS (4)
  1. NASONEX [Suspect]
     Indication: SINUS DISORDER
     Dosage: 1 DF, QD, 1 SPRAY IN EACH NOSTRIL ONCE A DAY
     Route: 045
     Dates: start: 20140421, end: 20140422
  2. SUPRAX (CEFIXIME) [Concomitant]
     Dosage: UNK
  3. VENTOLIN HFA [Concomitant]
  4. BENZONATATE [Concomitant]

REACTIONS (1)
  - Burning sensation [Unknown]
